FAERS Safety Report 9013305 (Version 1)
Quarter: 2013Q1

REPORT INFORMATION
  Report Type: Spontaneous
  Country: US (occurrence: None)
  Receive Date: 20130107
  Receipt Date: 20130107
  Transmission Date: 20140127
  Serious: Yes (Other)
  Sender: FDA-Public Use
  Company Number: None

PATIENT
  Age: 52 Year
  Sex: Male
  Weight: 74.39 kg

DRUGS (1)
  1. INCIVEK [Suspect]
     Dosage: 2 TABS, TID, PO
     Route: 048
     Dates: start: 20120925, end: 20121217

REACTIONS (1)
  - Rash [None]
